FAERS Safety Report 23976203 (Version 5)
Quarter: 2024Q4

REPORT INFORMATION
  Report Type: Spontaneous
  Country: US (occurrence: US)
  Receive Date: 20240614
  Receipt Date: 20241205
  Transmission Date: 20250115
  Serious: No
  Sender: PFIZER
  Company Number: US-PFIZER INC-202400190793

PATIENT
  Age: 9 Year
  Sex: Male

DRUGS (2)
  1. GENOTROPIN [Suspect]
     Active Substance: SOMATROPIN
     Indication: Short stature
     Dosage: 0.8 MG
     Dates: start: 20240216, end: 2024
  2. GENOTROPIN [Suspect]
     Active Substance: SOMATROPIN
     Dosage: 1 MG, DAILY
     Dates: start: 2024

REACTIONS (4)
  - Device use error [Unknown]
  - Drug dose omission by device [Unknown]
  - Device breakage [Unknown]
  - Device material issue [Unknown]

NARRATIVE: CASE EVENT DATE: 20240606
